FAERS Safety Report 7675295-1 (Version None)
Quarter: 2011Q3

REPORT INFORMATION
  Report Type: 
  Country: None (occurrence: None)
  Receive Date: 20110810
  Receipt Date: 20110729
  Transmission Date: 20111222
  Serious: Yes (Other)
  Sender: FDA-Public Use
  Company Number: US-MYLANLABS-2011S1015891

PATIENT
  Age: 63 Year
  Sex: Male

DRUGS (3)
  1. PHENYTOIN SODIUM CAP [Suspect]
     Route: 048
     Dates: start: 20110101
  2. ENALAPRIL MALEATE [Concomitant]
  3. PHENYTOIN SODIUM CAP [Suspect]
     Indication: EPILEPSY
     Route: 048
     Dates: start: 20110401, end: 20110101

REACTIONS (3)
  - EPILEPSY [None]
  - ANTICONVULSANT DRUG LEVEL DECREASED [None]
  - ANTICONVULSANT DRUG LEVEL INCREASED [None]
